FAERS Safety Report 5589721-5 (Version None)
Quarter: 2008Q1

REPORT INFORMATION
  Report Type: 
  Country: None (occurrence: None)
  Receive Date: 20080114
  Receipt Date: 20080104
  Transmission Date: 20080703
  Serious: Yes (Other)
  Sender: FDA-Public Use
  Company Number: B0502002A

PATIENT
  Age: 30 Year
  Sex: Female

DRUGS (2)
  1. LAMICTAL [Suspect]
     Indication: EPILEPSY
     Route: 048
     Dates: start: 20031125
  2. LINCOMYCIN HCL [Suspect]
     Indication: PHARYNGITIS
     Route: 048
     Dates: start: 20040408, end: 20040412

REACTIONS (1)
  - PARTIAL SEIZURES [None]
